FAERS Safety Report 9587890 (Version 1)
Quarter: 2013Q4

REPORT INFORMATION
  Report Type: Spontaneous
  Country: US (occurrence: US)
  Receive Date: 20131003
  Receipt Date: 20131003
  Transmission Date: 20140711
  Serious: Yes (Other)
  Sender: FDA-Public Use
  Company Number: US-GLAXOSMITHKLINE-A1043700A

PATIENT
  Age: 71 Year
  Sex: Male

DRUGS (13)
  1. FLOVENT [Suspect]
     Indication: DYSPNOEA
     Dosage: 1PUFF TWICE PER DAY
     Route: 055
     Dates: start: 201309
  2. SPIRIVA [Concomitant]
  3. HUMULIN 70/30 [Concomitant]
  4. KLOR CON [Concomitant]
  5. AMLODIPINE [Concomitant]
  6. AMITRIPTYLINE [Concomitant]
  7. FUROSEMIDE [Concomitant]
  8. GABAPENTIN [Concomitant]
  9. HYDRALAZINE [Concomitant]
  10. PRAVASTATIN [Concomitant]
  11. METFORMIN [Concomitant]
  12. ENALAPRIL [Concomitant]
  13. ASPIRIN [Concomitant]

REACTIONS (3)
  - Loss of consciousness [Recovered/Resolved]
  - Dizziness [Recovered/Resolved]
  - Asthenia [Recovered/Resolved]
